FAERS Safety Report 5186461-1 (Version None)
Quarter: 2006Q4

REPORT INFORMATION
  Report Type: 
  Country: None (occurrence: None)
  Receive Date: 20061213
  Receipt Date: 20061128
  Transmission Date: 20070319
  Serious: Yes (Hospitalization)
  Sender: FDA-Public Use
  Company Number: 15274

PATIENT
  Age: 67 Year
  Sex: Female
  Weight: 63 kg

DRUGS (6)
  1. 5-FU /00098801/. MFR: NOT SPECIFIED [Suspect]
     Indication: COLON CANCER
     Dosage: 2000 MG/M2 WEEKLY
  2. FOLIC ACID [Suspect]
     Indication: COLON CANCER
     Dosage: 500 MG/M2
  3. CAMPTOSAR [Suspect]
     Dosage: 80 MG/M2
  4. ATROPINE SULFATE [Concomitant]
  5. ZOFRAN [Concomitant]
  6. EMEND [Concomitant]

REACTIONS (4)
  - ALOPECIA [None]
  - ASTHENIA [None]
  - DIARRHOEA [None]
  - PARAESTHESIA [None]
